FAERS Safety Report 9735883 (Version 2)
Quarter: 2013Q4

REPORT INFORMATION
  Report Type: Spontaneous
  Country: US (occurrence: US)
  Receive Date: 20131206
  Receipt Date: 20131206
  Transmission Date: 20140711
  Serious: No
  Sender: FDA-Public Use
  Company Number: US-GILEAD-2009-0024044

PATIENT
  Sex: Female
  Weight: 48.99 kg

DRUGS (5)
  1. LETAIRIS [Suspect]
     Indication: PULMONARY ARTERIAL HYPERTENSION
     Route: 048
     Dates: start: 20090808
  2. OXYGEN [Concomitant]
  3. NORVASC [Concomitant]
  4. SYMBICORT [Concomitant]
  5. SPIRIVA [Concomitant]

REACTIONS (2)
  - Feeling abnormal [Recovered/Resolved]
  - Local swelling [Unknown]
